FAERS Safety Report 14101150 (Version 1)
Quarter: 2017Q4

REPORT INFORMATION
  Report Type: Spontaneous
  Country: JP (occurrence: JP)
  Receive Date: 20171018
  Receipt Date: 20171018
  Transmission Date: 20180321
  Serious: Yes (Other)
  Sender: FDA-Public Use
  Company Number: JP-SHIRE-JP201722678AA

PATIENT
  Sex: Male

DRUGS (3)
  1. AGRYLIN [Suspect]
     Active Substance: ANAGRELIDE HYDROCHLORIDE
     Indication: ESSENTIAL THROMBOCYTHAEMIA
     Dosage: 1 MG/DAY
     Route: 048
     Dates: start: 20170517, end: 20170613
  2. AGRYLIN [Suspect]
     Active Substance: ANAGRELIDE HYDROCHLORIDE
     Dosage: 0.5 MG/DAY
     Route: 048
     Dates: start: 20170614
  3. HYDREA [Concomitant]
     Active Substance: HYDROXYUREA
     Indication: ESSENTIAL THROMBOCYTHAEMIA
     Dosage: UNK, UNKNOWN
     Route: 065

REACTIONS (2)
  - Myelofibrosis [Recovering/Resolving]
  - Night sweats [Recovering/Resolving]

NARRATIVE: CASE EVENT DATE: 201706
